FAERS Safety Report 18175495 (Version 6)
Quarter: 2022Q2

REPORT INFORMATION
  Report Type: Spontaneous
  Country: US (occurrence: US)
  Receive Date: 20200820
  Receipt Date: 20220420
  Transmission Date: 20220721
  Serious: No
  Sender: FDA-Public Use
  Company Number: US-PFIZER INC-2020320971

PATIENT
  Age: 72 Year
  Sex: Female
  Weight: 53.07 kg

DRUGS (2)
  1. PREMARIN [Suspect]
     Active Substance: ESTROGENS, CONJUGATED
     Indication: Bladder operation
     Dosage: UNK
  2. PREMARIN [Suspect]
     Active Substance: ESTROGENS, CONJUGATED
     Indication: Bladder prolapse

REACTIONS (5)
  - Confusional state [Unknown]
  - Thinking abnormal [Unknown]
  - Off label use [Unknown]
  - Product use in unapproved indication [Unknown]
  - Product prescribing error [Unknown]
